FAERS Safety Report 25039884 (Version 1)
Quarter: 2025Q1

REPORT INFORMATION
  Report Type: Spontaneous
  Country: US (occurrence: US)
  Receive Date: 20250305
  Receipt Date: 20250305
  Transmission Date: 20250409
  Serious: Yes (Other)
  Sender: COOPERSURGICAL
  Company Number: US-COOPERSURGICAL, INC.-2025CPS001335

PATIENT
  Age: 24 Year
  Sex: Female
  Weight: 49.887 kg

DRUGS (1)
  1. PARAGARD T 380A [Suspect]
     Active Substance: COPPER
     Route: 015
     Dates: start: 20151105

REACTIONS (8)
  - Reproductive complication associated with device [Unknown]
  - Device breakage [Unknown]
  - Foreign body in urogenital tract [Unknown]
  - Complication of device removal [Unknown]
  - Emotional disorder [Unknown]
  - Uterine pain [Recovered/Resolved]
  - Abnormal uterine bleeding [Recovered/Resolved]
  - Dysmenorrhoea [Unknown]

NARRATIVE: CASE EVENT DATE: 20211207
